FAERS Safety Report 7930184-X (Version None)
Quarter: 2011Q4

REPORT INFORMATION
  Report Type: 
  Country: None (occurrence: None)
  Receive Date: 20111117
  Receipt Date: 20111103
  Transmission Date: 20120403
  Serious: Yes (Death, Hospitalization)
  Sender: FDA-Public Use
  Company Number: UTC-011192

PATIENT
  Age: 68 Year
  Sex: Male
  Weight: 110.9 kg

DRUGS (2)
  1. TRACLEER [Concomitant]
  2. TYVASO [Suspect]
     Indication: PULMONARY ARTERIAL HYPERTENSION
     Dosage: 18-54 MICROGRAMS (4 IN 1 D),INHA
     Route: 055
     Dates: start: 20110616

REACTIONS (4)
  - DISEASE PROGRESSION [None]
  - PNEUMONIA [None]
  - DISEASE COMPLICATION [None]
  - PULMONARY HYPERTENSION [None]
